FAERS Safety Report 5003697-0 (Version None)
Quarter: 2006Q2

REPORT INFORMATION
  Report Type: 
  Country: None (occurrence: None)
  Receive Date: 20060516
  Receipt Date: 20060424
  Transmission Date: 20061013
  Serious: Yes (Hospitalization)
  Sender: FDA-Public Use
  Company Number: DE-MERCK-0604DEU00109

PATIENT
  Age: 74 Year
  Sex: Female

DRUGS (6)
  1. FOSAMAX [Suspect]
     Route: 048
     Dates: start: 20010101
  2. FOSAMAX [Suspect]
     Route: 048
     Dates: end: 20060201
  3. LEVOTHYROXINE SODIUM [Concomitant]
     Route: 048
     Dates: start: 20050101
  4. CAPTOPRIL AND HYDROCHLOROTHIAZIDE [Concomitant]
     Route: 048
     Dates: start: 20020101
  5. ASPIRIN [Concomitant]
     Route: 048
     Dates: start: 20020101
  6. CALCIUM CARBONATE AND CHOLECALCIFEROL [Concomitant]
     Route: 048
     Dates: start: 20010101

REACTIONS (3)
  - ARTHROPATHY [None]
  - JAW DISORDER [None]
  - THYROID DISORDER [None]
